FAERS Safety Report 4661709-8 (Version None)
Quarter: 2005Q2

REPORT INFORMATION
  Report Type: 
  Country: None (occurrence: None)
  Receive Date: 20050512
  Receipt Date: 20050512
  Transmission Date: 20051028
  Serious: Yes (Death)
  Sender: FDA-Public Use
  Company Number: None

PATIENT
  Sex: Male
  Weight: 84.5 kg

DRUGS (3)
  1. CARMUSTINE [Suspect]
     Dosage: 80 MG/M2 ON DAYS 1, 2, AND 3 OF THE FIRST WEEK OF RADIOTHERAPY AND ON DAYS 56,57, AND 58, THEN Q 8WK
     Dates: start: 20050209
  2. RADIATION THERAPY [Suspect]
     Dosage: 59.4 GY (1.8 GY X 3 FRACTIONS, 5 DAYS A WEEK X 6 WEEKS
  3. DEXAMETHASONE [Concomitant]

REACTIONS (5)
  - ACUTE MYOCARDIAL INFARCTION [None]
  - ACUTE RESPIRATORY DISTRESS SYNDROME [None]
  - PNEUMOCYSTIS JIROVECI PNEUMONIA [None]
  - PNEUMONIA CYTOMEGALOVIRAL [None]
  - RENAL FAILURE [None]
